FAERS Safety Report 8064008-X (Version None)
Quarter: 2012Q1

REPORT INFORMATION
  Report Type: 
  Country: None (occurrence: None)
  Receive Date: 20120123
  Receipt Date: 20120117
  Transmission Date: 20120608
  Serious: Yes (Other)
  Sender: FDA-Public Use
  Company Number: PHHY2012MX004953

PATIENT
  Sex: Female

DRUGS (5)
  1. METHOTREXATE [Concomitant]
     Indication: ARTHRITIS
     Dosage: 1 UKN, QW5
  2. AMLODIPINE [Concomitant]
     Indication: HYPERTENSION
     Dosage: 1 UKN, QD
  3. LOSARTAN POTASSIUM [Concomitant]
     Indication: HYPERTENSION
     Dosage: 1 UKN, BID
  4. ZOLEDRONOC ACID [Suspect]
     Indication: OSTEOPOROSIS
     Dosage: 5 MG, YEARLY
     Route: 042
     Dates: start: 20110101
  5. ARALEN [Concomitant]
     Indication: ARTHRITIS
     Dosage: 1 UKN, QW3

REACTIONS (3)
  - COUGH [None]
  - PYREXIA [None]
  - PNEUMONIA [None]
